FAERS Safety Report 20991642 (Version 1)
Quarter: 2022Q2

REPORT INFORMATION
  Report Type: Other
  Country: US (occurrence: None)
  Receive Date: 20220622
  Receipt Date: 20220622
  Transmission Date: 20220720
  Serious: Yes (Other)
  Sender: FDA-Public Use
  Company Number: US-ROCHE-3120330

PATIENT
  Sex: Female

DRUGS (1)
  1. XELODA [Suspect]
     Active Substance: CAPECITABINE
     Indication: Cervix carcinoma
     Dosage: TAKE 4 TABLET(S) BY MOUTH TWICE A DAY FOR 2 WEEK(S) ON AND 1 WEEK OFF EVERY 21 DAY(S)
     Route: 048

REACTIONS (4)
  - Diabetes mellitus [Unknown]
  - Gastrooesophageal reflux disease [Unknown]
  - Off label use [Unknown]
  - No adverse event [Unknown]
